FAERS Safety Report 5743447-3 (Version None)
Quarter: 2008Q2

REPORT INFORMATION
  Report Type: 
  Country: None (occurrence: None)
  Receive Date: 20080519
  Receipt Date: 20080519
  Transmission Date: 20081010
  Serious: Yes (Other)
  Sender: FDA-Public Use
  Company Number: None

PATIENT
  Age: 57 Year
  Sex: Male

DRUGS (1)
  1. LANTUS [Suspect]
     Indication: DIABETES MELLITUS
     Dosage: INJECT 10 UNITS UNDER THE SKIN AT BEDTIME
     Dates: start: 20080503, end: 20080507

REACTIONS (5)
  - BLOOD GLUCOSE INCREASED [None]
  - DEVICE FAILURE [None]
  - DEVICE LEAKAGE [None]
  - PHARMACEUTICAL PRODUCT COMPLAINT [None]
  - THERAPEUTIC RESPONSE UNEXPECTED WITH DRUG SUBSTITUTION [None]
